FAERS Safety Report 4342200-5 (Version None)
Quarter: 2004Q1

REPORT INFORMATION
  Report Type: 
  Country: None (occurrence: None)
  Receive Date: 20040329
  Receipt Date: 20031205
  Transmission Date: 20041129
  Serious: No
  Sender: FDA-Public Use
  Company Number: USA031254135

PATIENT
  Age: 60 Year
  Sex: Female

DRUGS (1)
  1. STRATTERA [Suspect]
     Indication: ATTENTION DEFICIT/HYPERACTIVITY DISORDER
     Dosage: 80 MG
     Dates: start: 20030701

REACTIONS (4)
  - DISEASE PROGRESSION [None]
  - DISTURBANCE IN ATTENTION [None]
  - FATIGUE [None]
  - SINUSITIS [None]
